FAERS Safety Report 5485355-1 (Version None)
Quarter: 2007Q4

REPORT INFORMATION
  Report Type: 
  Country: None (occurrence: None)
  Receive Date: 20071015
  Receipt Date: 20071010
  Transmission Date: 20080405
  Serious: Yes (Hospitalization)
  Sender: FDA-Public Use
  Company Number: FR-BRISTOL-MYERS SQUIBB COMPANY-13935762

PATIENT
  Age: 71 Year
  Sex: Female

DRUGS (1)
  1. COAPROVEL TABS 300MG/12.5MG [Suspect]
     Dosage: DOSE REDUCED TO 150 MG DAILY.
     Route: 048
     Dates: start: 20040101

REACTIONS (2)
  - APHTHOUS STOMATITIS [None]
  - CONDITION AGGRAVATED [None]
